FAERS Safety Report 7290061-7 (Version None)
Quarter: 2011Q1

REPORT INFORMATION
  Report Type: 
  Country: None (occurrence: None)
  Receive Date: 20110214
  Receipt Date: 20110203
  Transmission Date: 20110831
  Serious: Yes (Other)
  Sender: FDA-Public Use
  Company Number: US-ELI_LILLY_AND_COMPANY-US201101002800

PATIENT
  Sex: Male

DRUGS (12)
  1. CLONIDINE [Concomitant]
  2. VYTORIN [Concomitant]
  3. HUMALOG [Suspect]
     Indication: DIABETES MELLITUS
     Dosage: UNK, 3/D
  4. LANTUS [Concomitant]
  5. TOPROL-XL [Concomitant]
  6. LISINOPRIL [Concomitant]
  7. FUROSEMIDE [Concomitant]
  8. AVAPRO [Concomitant]
  9. PRILOSEC [Concomitant]
  10. IMDUR [Concomitant]
  11. ASPIRIN [Concomitant]
  12. AMLODIPINE [Concomitant]

REACTIONS (3)
  - OCULAR MYASTHENIA [None]
  - DIABETIC RETINOPATHY [None]
  - INCORRECT DOSE ADMINISTERED [None]
